FAERS Safety Report 5575954-0 (Version None)
Quarter: 2007Q4

REPORT INFORMATION
  Report Type: 
  Country: None (occurrence: None)
  Receive Date: 20071130
  Receipt Date: 20070911
  Transmission Date: 20080405
  Serious: No
  Sender: FDA-Public Use
  Company Number: US200708001814

PATIENT
  Age: 51 Year
  Sex: Female
  Weight: 109.8 kg

DRUGS (4)
  1. BYETTA [Suspect]
     Indication: TYPE 2 DIABETES MELLITUS
     Dosage: 5 UG, 2/D, SUBCUTANEOUS
     Route: 058
     Dates: start: 20070807, end: 20070807
  2. SYNTHROID [Concomitant]
  3. PAXIL [Concomitant]
  4. PROTONIX [Concomitant]

REACTIONS (6)
  - DARK CIRCLES UNDER EYES [None]
  - EYE DISORDER [None]
  - FOREIGN BODY SENSATION IN EYES [None]
  - NAUSEA [None]
  - ORAL PRURITUS [None]
  - RASH PRURITIC [None]
